FAERS Safety Report 5872879-8 (Version None)
Quarter: 2008Q3

REPORT INFORMATION
  Report Type: 
  Country: None (occurrence: None)
  Receive Date: 20080905
  Receipt Date: 20080826
  Transmission Date: 20090109
  Serious: Yes (Other)
  Sender: FDA-Public Use
  Company Number: US-BAYER-200832040NA

PATIENT
  Sex: Female
  Weight: 88 kg

DRUGS (2)
  1. CAMPATH [Suspect]
     Indication: DRUG USE FOR UNKNOWN INDICATION
     Dates: start: 20040901
  2. CAMPATH [Suspect]
     Dates: start: 20040901

REACTIONS (4)
  - CYTOMEGALOVIRUS TEST [None]
  - HEPATIC ENZYME INCREASED [None]
  - HEPATITIS C [None]
  - SPLENOMEGALY [None]
